FAERS Safety Report 6865010-3 (Version None)
Quarter: 2010Q3

REPORT INFORMATION
  Report Type: 
  Country: None (occurrence: None)
  Receive Date: 20100721
  Receipt Date: 20080408
  Transmission Date: 20110219
  Serious: No
  Sender: FDA-Public Use
  Company Number: US-PFIZER INC-2008032700

PATIENT
  Sex: Female
  Weight: 56.8 kg

DRUGS (1)
  1. CHANTIX [Suspect]
     Indication: SMOKING CESSATION THERAPY
     Dates: start: 20080404

REACTIONS (3)
  - DISTURBANCE IN ATTENTION [None]
  - INSOMNIA [None]
  - PARAESTHESIA ORAL [None]
